FAERS Safety Report 7623682-X (Version None)
Quarter: 2011Q3

REPORT INFORMATION
  Report Type: 
  Country: None (occurrence: None)
  Receive Date: 20110720
  Receipt Date: 20110630
  Transmission Date: 20111222
  Serious: Yes (Death, Hospitalization)
  Sender: FDA-Public Use
  Company Number: US-GLAXOSMITHKLINE-A0784627A

PATIENT
  Age: 46 Year
  Sex: Male
  Weight: 145.5 kg

DRUGS (17)
  1. ZOCOR [Concomitant]
  2. CPAP [Concomitant]
  3. AVANDIA [Suspect]
     Indication: DIABETES MELLITUS
     Dosage: 8MG PER DAY
     Route: 048
     Dates: end: 20070201
  4. LOTENSIN [Concomitant]
  5. TRICOR [Concomitant]
  6. METFORMIN HCL [Concomitant]
  7. VYTORIN [Concomitant]
  8. AVANDAMET [Suspect]
     Indication: DIABETES MELLITUS
     Route: 048
     Dates: start: 20030106, end: 20070205
  9. LOTREL [Concomitant]
  10. INSULIN [Concomitant]
  11. METFORMIN HCL [Concomitant]
  12. LANTUS [Concomitant]
  13. AMARYL [Concomitant]
  14. COREG [Concomitant]
  15. PRECOSE [Concomitant]
  16. PIROXICAM [Concomitant]
  17. SULAR [Concomitant]

REACTIONS (2)
  - MYOCARDIAL INFARCTION [None]
  - CARDIO-RESPIRATORY ARREST [None]
